FAERS Safety Report 17764147 (Version 2)
Quarter: 2024Q2

REPORT INFORMATION
  Report Type: Spontaneous
  Country: DE (occurrence: DE)
  Receive Date: 20200511
  Receipt Date: 20240508
  Transmission Date: 20240716
  Serious: Yes (Other)
  Sender: FDA-Public Use
  Company Number: DE-EMA-DD-20200429-KUMARSINGH_A-112622

PATIENT
  Age: 68 Year
  Sex: Female

DRUGS (3)
  1. HYDROCHLOROTHIAZIDE [Suspect]
     Active Substance: HYDROCHLOROTHIAZIDE
     Indication: Product used for unknown indication
     Dosage: UNK (DOSE: NOT REPORTED)
     Route: 065
  2. HYDROCHLOROTHIAZIDE\RAMIPRIL [Suspect]
     Active Substance: HYDROCHLOROTHIAZIDE\RAMIPRIL
     Indication: Product used for unknown indication
     Dosage: UNK (FORM = TABS )
     Route: 048
  3. HYDROCHLOROTHIAZIDE\IRBESARTAN [Suspect]
     Active Substance: HYDROCHLOROTHIAZIDE\IRBESARTAN
     Indication: Product used for unknown indication
     Dosage: 1 DOSAGE FORM, ONCE A DAY (DOSE: 150 MG / 12.5 MG)
     Route: 048

REACTIONS (3)
  - Myasthenia gravis [Not Recovered/Not Resolved]
  - Visual field defect [Not Recovered/Not Resolved]
  - Muscle discomfort [Not Recovered/Not Resolved]
